FAERS Safety Report 25766416 (Version 2)
Quarter: 2025Q4

REPORT INFORMATION
  Report Type: Spontaneous
  Country: JP (occurrence: JP)
  Receive Date: 20250905
  Receipt Date: 20251203
  Transmission Date: 20260118
  Serious: Yes (Other)
  Sender: BRISTOL-MYERS SQUIBB COMPANY
  Company Number: JP-ONO-2025JP015810

PATIENT
  Age: 7 Decade

DRUGS (1)
  1. OPDIVO [Suspect]
     Active Substance: NIVOLUMAB
     Indication: Malignant neoplasm of unknown primary site
     Dosage: UNK
     Route: 041

REACTIONS (4)
  - Monoplegia [Unknown]
  - Decubitus ulcer [Unknown]
  - Anaemia [Unknown]
  - Spinal cord compression [Unknown]

NARRATIVE: CASE EVENT DATE: 20250801
